FAERS Safety Report 8506232-5 (Version None)
Quarter: 2012Q3

REPORT INFORMATION
  Report Type: 
  Country: None (occurrence: None)
  Receive Date: 20120712
  Receipt Date: 20120628
  Transmission Date: 20120928
  Serious: Yes (Other)
  Sender: FDA-Public Use
  Company Number: US-WATSON-2012-11478

PATIENT
  Sex: Female
  Weight: 61 kg

DRUGS (1)
  1. LEVONORGESTREL [Suspect]
     Indication: ORAL CONTRACEPTION
     Dosage: TOOK 1ST TAB W/I A FEW HRS; 2ND TAB 72 HRS LATER
     Route: 048
     Dates: start: 20120401, end: 20120401

REACTIONS (3)
  - DEPRESSION [None]
  - INAPPROPRIATE SCHEDULE OF DRUG ADMINISTRATION [None]
  - ABORTION SPONTANEOUS [None]
